FAERS Safety Report 6222633-2 (Version None)
Quarter: 2009Q2

REPORT INFORMATION
  Report Type: 
  Country: None (occurrence: None)
  Receive Date: 20090609
  Receipt Date: 20090609
  Transmission Date: 20091009
  Serious: No
  Sender: FDA-Public Use
  Company Number: None

PATIENT
  Age: 53 Year
  Sex: Male

DRUGS (2)
  1. SULFAMETHOXAZOLE AND TRIMETHOPRIM [Suspect]
     Indication: DIABETIC FOOT
     Dosage: 1 TAB BID PO
     Route: 048
     Dates: start: 20090527, end: 20090604
  2. CEPHALEXIN [Suspect]
     Dosage: 500 MG TID PO
     Route: 048
     Dates: start: 20090527

REACTIONS (2)
  - HYPOPHAGIA [None]
  - STEVENS-JOHNSON SYNDROME [None]
